FAERS Safety Report 7633346 (Version 2)
Quarter: 2013Q3

REPORT INFORMATION
  Report Type: Spontaneous
  Country: US (occurrence: US)
  Receive Date: 20101019
  Receipt Date: 20130902
  Transmission Date: 20140515
  Serious: Yes (Other)
  Sender: FDA-Public Use
  Company Number: US-RANBAXY-2010US-38594

PATIENT
  Age: 54 Year
  Sex: Female

DRUGS (5)
  1. TOPIRAMATE [Suspect]
     Indication: HEADACHE
     Dosage: UNK
     Route: 065
  2. TOPAMAX [Suspect]
     Indication: HEADACHE
     Dosage: UNK
     Route: 065
  3. TOPAMAX [Suspect]
     Indication: HEADACHE
     Dosage: 125 MG, DAILY
     Route: 065
  4. GABAPENTIN [Concomitant]
     Indication: SLEEP DISORDER
     Dosage: UNK
     Route: 065
  5. LISINOPRIL [Concomitant]
     Indication: PRODUCT USED FOR UNKNOWN INDICATION
     Dosage: UNK
     Route: 065

REACTIONS (1)
  - Burning mouth syndrome [Recovered/Resolved]
